FAERS Safety Report 19905705 (Version 1)
Quarter: 2021Q4

REPORT INFORMATION
  Report Type: Spontaneous
  Country: US (occurrence: US)
  Receive Date: 20211001
  Receipt Date: 20211001
  Transmission Date: 20220303
  Serious: Yes (Hospitalization)
  Sender: FDA-Public Use
  Company Number: None

PATIENT
  Age: 76 Year
  Sex: Male

DRUGS (2)
  1. REVLIMID [Suspect]
     Active Substance: LENALIDOMIDE
     Indication: Plasma cell myeloma
     Route: 048
     Dates: start: 20210522, end: 20210916
  2. REVLIMID [Concomitant]
     Active Substance: LENALIDOMIDE
     Dates: start: 20210522, end: 20210916

REACTIONS (2)
  - Gastrointestinal haemorrhage [None]
  - Therapy cessation [None]

NARRATIVE: CASE EVENT DATE: 20210916
